FAERS Safety Report 19129612 (Version 6)
Quarter: 2021Q3

REPORT INFORMATION
  Report Type: Report from Study
  Country: BR (occurrence: BR)
  Receive Date: 20210413
  Receipt Date: 20210916
  Transmission Date: 20211014
  Serious: Yes (Hospitalization, Other)
  Sender: FDA-Public Use
  Company Number: NVSC2021BR077550

PATIENT
  Age: 62 Year
  Sex: Female

DRUGS (7)
  1. PRISTIQ EXTENDED?RELEASE [Concomitant]
     Active Substance: DESVENLAFAXINE SUCCINATE
     Indication: PRODUCT USED FOR UNKNOWN INDICATION
     Dosage: UNK
     Route: 065
  2. KISQALI [Suspect]
     Active Substance: RIBOCICLIB
     Indication: PRODUCT USED FOR UNKNOWN INDICATION
     Dosage: UNK
     Route: 065
     Dates: start: 20210323
  3. KISQALI [Suspect]
     Active Substance: RIBOCICLIB
     Dosage: 1 DF, BID 1 TABLET IN THE MORNING AND 1 IN THE NIGHT
     Route: 065
  4. KISQALI [Suspect]
     Active Substance: RIBOCICLIB
     Dosage: 3 DF, QD 1 DF IN MORNING AND 2 DF IN THE NIGHT
     Route: 065
     Dates: start: 20210324
  5. KISQALI [Suspect]
     Active Substance: RIBOCICLIB
     Dosage: UNK, BID
     Route: 065
     Dates: start: 20210324
  6. FULVESTRANT. [Concomitant]
     Active Substance: FULVESTRANT
     Indication: PRODUCT USED FOR UNKNOWN INDICATION
     Dosage: UNK UNK, Q2W
     Route: 065
     Dates: start: 20210323
  7. KISQALI [Suspect]
     Active Substance: RIBOCICLIB
     Dosage: 1 DF, TID 1 TABLET IN BREAKFAST, LUNCH AND DINNER
     Route: 065

REACTIONS (23)
  - Gastrointestinal pain [Not Recovered/Not Resolved]
  - Dysphonia [Recovering/Resolving]
  - Abdominal pain upper [Unknown]
  - Muscular weakness [Unknown]
  - Dysentery [Recovered/Resolved]
  - Chills [Unknown]
  - General physical health deterioration [Unknown]
  - Dysgeusia [Unknown]
  - Product administration error [Not Recovered/Not Resolved]
  - Fall [Unknown]
  - Off label use [Unknown]
  - Feeling of despair [Unknown]
  - Influenza [Recovering/Resolving]
  - Decreased appetite [Not Recovered/Not Resolved]
  - Cough [Recovering/Resolving]
  - Vomiting [Recovered/Resolved]
  - Abdominal discomfort [Recovered/Resolved]
  - Fatigue [Not Recovered/Not Resolved]
  - Abdominal pain [Not Recovered/Not Resolved]
  - Motion sickness [Unknown]
  - Malaise [Recovered/Resolved]
  - Product use issue [Unknown]
  - Diarrhoea [Recovered/Resolved]

NARRATIVE: CASE EVENT DATE: 20210324
